FAERS Safety Report 9434726 (Version 2)
Quarter: 2013Q3

REPORT INFORMATION
  Report Type: Spontaneous
  Country: US (occurrence: US)
  Receive Date: 20130801
  Receipt Date: 20130903
  Transmission Date: 20140515
  Serious: Yes (Death)
  Sender: FDA-Public Use
  Company Number: US-ASTELLAS-2013US007925

PATIENT
  Sex: Male

DRUGS (1)
  1. TARCEVA [Suspect]
     Indication: LIP NEOPLASM MALIGNANT STAGE UNSPECIFIED
     Dosage: 100 MG, UID/QD
     Route: 048
     Dates: start: 20130213, end: 20130613

REACTIONS (2)
  - Off label use [Unknown]
  - Pancreatic carcinoma [Fatal]
